FAERS Safety Report 17830341 (Version 2)
Quarter: 2020Q2

REPORT INFORMATION
  Report Type: Spontaneous
  Country: DE (occurrence: DE)
  Receive Date: 20200527
  Receipt Date: 20200617
  Transmission Date: 20200714
  Serious: Yes (Other)
  Sender: FDA-Public Use
  Company Number: NVSC2020DE143803

PATIENT
  Age: 70 Year
  Sex: Male

DRUGS (17)
  1. RITUXIMAB. [Suspect]
     Active Substance: RITUXIMAB
     Dosage: 375 MG/M2, AS A PART OF R-GEM/OX REGIMEN
     Route: 065
  2. CYTARABINE. [Suspect]
     Active Substance: CYTARABINE
     Dosage: 2000 MG/M2, BID, AS A PART OF R-DHAP REGIMEN
     Route: 065
  3. CARMUSTINE. [Suspect]
     Active Substance: CARMUSTINE
     Indication: DIFFUSE LARGE B-CELL LYMPHOMA
     Dosage: 60 MG/M2, AS A PART OF DEXA-BEAM REGIMEN.
     Route: 065
  4. DOXORUBICIN [Suspect]
     Active Substance: DOXORUBICIN
     Indication: DIFFUSE LARGE B-CELL LYMPHOMA
     Dosage: CLASSICAL R-CHOP REGIMEN WAS ADMINISTERED IN 75 % DOSE REDUCTION DUE TO COMORBIDITIES. R-CHOP REG...
     Route: 065
  5. CYCLOPHOSPHAMIDE. [Suspect]
     Active Substance: CYCLOPHOSPHAMIDE
     Indication: DIFFUSE LARGE B-CELL LYMPHOMA
     Dosage: CLASSICAL R-CHOP REGIMEN WAS ADMINISTERED IN 75 % DOSE REDUCTION DUE TO COMORBIDITIES. R-CHOP REG...
     Route: 065
  6. PREDNISOLONE. [Suspect]
     Active Substance: PREDNISOLONE
     Indication: DIFFUSE LARGE B-CELL LYMPHOMA
     Dosage: CLASSICAL R-CHOP REGIMEN WAS ADMINISTERED IN 75 % DOSE REDUCTION DUE TO COMORBIDITIES. R-CHOP REG...
     Route: 065
  7. RITUXIMAB. [Suspect]
     Active Substance: RITUXIMAB
     Dosage: 375 MG/M2, AS A PART OF R-DHAP REGIMEN
     Route: 065
  8. OXALIPLATIN. [Suspect]
     Active Substance: OXALIPLATIN
     Indication: DIFFUSE LARGE B-CELL LYMPHOMA
     Dosage: 1000 MG/M2 AS A PART OF R-GEM/OX REGIMEN.
     Route: 065
  9. CYTARABINE. [Suspect]
     Active Substance: CYTARABINE
     Indication: DIFFUSE LARGE B-CELL LYMPHOMA
     Dosage: 100 MG/M2, Q12H AS A PART OF DEXA-BEAM REGIMEN; OVER 4 DAYS.
     Route: 065
  10. CISPLATIN. [Suspect]
     Active Substance: CISPLATIN
     Indication: DIFFUSE LARGE B-CELL LYMPHOMA
     Dosage: 100 MG/M2 AS A PART OF R-DHAP REGIMEN.
     Route: 065
  11. MELPHALAN. [Suspect]
     Active Substance: MELPHALAN
     Indication: DIFFUSE LARGE B-CELL LYMPHOMA
     Dosage: 20 MG/M2 AS A PART OF DEXA-BEAM REGIMEN.
     Route: 065
  12. GEMCITABINE. [Suspect]
     Active Substance: GEMCITABINE
     Indication: DIFFUSE LARGE B-CELL LYMPHOMA
     Dosage: 1000 MG/M2 AS A PART OF R-GEM/OX REGIMEN
     Route: 065
  13. VINCRISTINE [Suspect]
     Active Substance: VINCRISTINE
     Indication: DIFFUSE LARGE B-CELL LYMPHOMA
     Dosage: CLASSICAL R-CHOP REGIMEN WAS ADMINISTERED IN 75 % DOSE REDUCTION DUE TO COMORBIDITIES. R-CHOP REG...
     Route: 065
  14. DEXAMETHASONE. [Suspect]
     Active Substance: DEXAMETHASONE
     Indication: DIFFUSE LARGE B-CELL LYMPHOMA
     Dosage: 24 MG AS A PART OF DEXA-BEAM REGIMEN
     Route: 065
  15. RITUXIMAB. [Suspect]
     Active Substance: RITUXIMAB
     Indication: DIFFUSE LARGE B-CELL LYMPHOMA
     Dosage: CLASSICAL R-CHOP REGIMEN WAS ADMINISTERED IN 75 % DOSE REDUCTION DUE TO COMORBIDITIES. R-CHOP REG...
     Route: 065
  16. DEXAMETHASONE. [Suspect]
     Active Substance: DEXAMETHASONE
     Dosage: 16 MG, AS A PART OF R-DHAP REGIMEN
     Route: 065
  17. ETOPOSIDE. [Suspect]
     Active Substance: ETOPOSIDE
     Indication: DIFFUSE LARGE B-CELL LYMPHOMA
     Dosage: 250 MG/M2, QD AS A PART OF DEXA-BEAM REGIMEN; OVER 4 DAYS.
     Route: 065

REACTIONS (1)
  - Thrombocytopenia [Unknown]
